FAERS Safety Report 8777388 (Version 1)
Quarter: 2012Q4

REPORT INFORMATION
  Report Type: 
  Country: NO (occurrence: NO)
  Receive Date: 20120911
  Receipt Date: 20120911
  Transmission Date: 20130627
  Serious: Yes (Other)
  Sender: FDA-Public Use
  Company Number: NO-WATSON-2012-15456

PATIENT
  Age: 74 Year
  Sex: Male

DRUGS (1)
  1. ALLOPURINOL (UNKNOWN) [Suspect]
     Indication: PRODUCT USED FOR UNKNOWN INDICATION
     Dosage: UNK
     Route: 065

REACTIONS (5)
  - Confusional state [Recovering/Resolving]
  - Pyrexia [Recovering/Resolving]
  - Rash pruritic [Recovering/Resolving]
  - Neutropenia [Recovering/Resolving]
  - Asthenia [Recovering/Resolving]
